FAERS Safety Report 5054896-3 (Version None)
Quarter: 2006Q2

REPORT INFORMATION
  Report Type: 
  Country: None (occurrence: None)
  Receive Date: 20060614
  Receipt Date: 20060216
  Transmission Date: 20061013
  Serious: No
  Sender: FDA-Public Use
  Company Number: US200602003572

PATIENT
  Age: 61 Year
  Sex: Male

DRUGS (3)
  1. CIALIS [Suspect]
     Indication: ERECTILE DYSFUNCTION
     Dosage: 20 MG
     Dates: start: 20060209
  2. CIALIS [Suspect]
     Indication: ERECTILE DYSFUNCTION
     Dosage: 20 MG
     Dates: start: 20060214
  3. ALLEGRA [Concomitant]

REACTIONS (3)
  - DYSPEPSIA [None]
  - FLUSHING [None]
  - MYALGIA [None]
